FAERS Safety Report 11394819 (Version 1)
Quarter: 2015Q3

REPORT INFORMATION
  Report Type: Spontaneous
  Country: US (occurrence: None)
  Receive Date: 20150817
  Receipt Date: 20150817
  Transmission Date: 20151125
  Serious: Yes (Hospitalization, Disabling)
  Sender: FDA-Public Use
  Company Number: None

PATIENT
  Age: 23 Year
  Sex: Male
  Weight: 136.08 kg

DRUGS (5)
  1. MULTIVITAMIN [Concomitant]
     Active Substance: VITAMINS
  2. RISPERDONE [Suspect]
     Active Substance: RISPERIDONE
     Indication: BIPOLAR DISORDER
     Dosage: 3MG ONCE DAILY PILL
     Dates: start: 20130701, end: 20150814
  3. ZANTAC [Concomitant]
     Active Substance: RANITIDINE HYDROCHLORIDE
  4. RISPERDAL [Concomitant]
     Active Substance: RISPERIDONE
  5. BUSPERONE [Concomitant]

REACTIONS (5)
  - Weight decreased [None]
  - Proctalgia [None]
  - Abdominal pain [None]
  - Gastrooesophageal reflux disease [None]
  - Mass [None]

NARRATIVE: CASE EVENT DATE: 20150814
